FAERS Safety Report 8215512-2 (Version None)
Quarter: 2012Q1

REPORT INFORMATION
  Report Type: 
  Country: None (occurrence: None)
  Receive Date: 20120229
  Receipt Date: 20111220
  Transmission Date: 20120608
  Serious: Yes (Other)
  Sender: FDA-Public Use
  Company Number: PHEH2011US01911

PATIENT
  Age: 50 Year
  Sex: Male

DRUGS (1)
  1. NEORAL [Suspect]
     Indication: RENAL TRANSPLANT

REACTIONS (2)
  - KIDNEY TRANSPLANT REJECTION [None]
  - COMPLICATIONS OF TRANSPLANTED KIDNEY [None]
